FAERS Safety Report 15777171 (Version 1)
Quarter: 2018Q4

REPORT INFORMATION
  Report Type: Spontaneous
  Country: US (occurrence: US)
  Receive Date: 20181230
  Receipt Date: 20181230
  Transmission Date: 20190205
  Serious: No
  Sender: FDA-Public Use
  Company Number: None

PATIENT
  Age: 47 Year
  Sex: Female
  Weight: 67.5 kg

DRUGS (2)
  1. METHYLPHENIDATE HCL TAB 27MG ER, GENERIC EQUIVALENT OF CONCERTA TAB 27 [Suspect]
     Active Substance: METHYLPHENIDATE HYDROCHLORIDE
     Indication: NARCOLEPSY
     Dosage: ?          QUANTITY:1 TABLET(S);?
     Route: 048
     Dates: start: 20181223, end: 20181230
  2. METHYLPHENIDATE HCL TAB 27MG ER, GENERIC EQUIVALENT OF CONCERTA TAB 27 [Suspect]
     Active Substance: METHYLPHENIDATE HYDROCHLORIDE
     Indication: ATTENTION DEFICIT/HYPERACTIVITY DISORDER
     Dosage: ?          QUANTITY:1 TABLET(S);?
     Route: 048
     Dates: start: 20181223, end: 20181230

REACTIONS (2)
  - Drug ineffective [None]
  - Therapeutic response changed [None]

NARRATIVE: CASE EVENT DATE: 20181226
